FAERS Safety Report 19884849 (Version 1)
Quarter: 2021Q3

REPORT INFORMATION
  Report Type: Spontaneous
  Country: US (occurrence: US)
  Receive Date: 20210927
  Receipt Date: 20210927
  Transmission Date: 20211014
  Serious: Yes (Other)
  Sender: FDA-Public Use
  Company Number: None

PATIENT
  Age: 75 Year
  Sex: Female
  Weight: 67.9 kg

DRUGS (4)
  1. ENOXAPARIN [Concomitant]
     Active Substance: ENOXAPARIN
     Dates: start: 20210904, end: 20210922
  2. REMDESIVIR. [Concomitant]
     Active Substance: REMDESIVIR
     Dates: start: 20210904, end: 20210909
  3. APIXABAN [Concomitant]
     Active Substance: APIXABAN
     Dates: start: 20210912, end: 20210912
  4. BARICITINIB. [Suspect]
     Active Substance: BARICITINIB
     Indication: COVID-19
     Route: 048
     Dates: start: 20210905, end: 20210913

REACTIONS (4)
  - Lung opacity [None]
  - COVID-19 pneumonia [None]
  - Pulmonary oedema [None]
  - Pulmonary embolism [None]

NARRATIVE: CASE EVENT DATE: 20210912
